FAERS Safety Report 5950655-5 (Version None)
Quarter: 2008Q4

REPORT INFORMATION
  Report Type: 
  Country: None (occurrence: None)
  Receive Date: 20081022
  Receipt Date: 20080615
  Transmission Date: 20090506
  Serious: No
  Sender: FDA-Public Use
  Company Number: ALL1-2008-01777

PATIENT
  Age: 14 Year
  Sex: Male
  Weight: 47.6 kg

DRUGS (3)
  1. VYVANSE [Suspect]
     Indication: ASPERGER'S DISORDER
     Dosage: 50 MG, 1X/DAY:QD,ORAL
     Route: 048
     Dates: start: 20080401
  2. CLONIDINE [Concomitant]
  3. MELATONIN [Concomitant]

REACTIONS (2)
  - OFF LABEL USE [None]
  - VISUAL FIELD DEFECT [None]
